FAERS Safety Report 6016212-X (Version None)
Quarter: 2008Q4

REPORT INFORMATION
  Report Type: 
  Country: None (occurrence: None)
  Receive Date: 20081222
  Receipt Date: 20080131
  Transmission Date: 20090506
  Serious: No
  Sender: FDA-Public Use
  Company Number: US-BRISTOL-MYERS SQUIBB COMPANY-14060966

PATIENT
  Sex: Male

DRUGS (1)
  1. KENALOG [Suspect]

REACTIONS (3)
  - INJECTION SITE DISCOLOURATION [None]
  - PAIN [None]
  - TENDON DISORDER [None]
